FAERS Safety Report 24343445 (Version 1)
Quarter: 2024Q3

REPORT INFORMATION
  Report Type: Spontaneous
  Country: CA (occurrence: CA)
  Receive Date: 20240920
  Receipt Date: 20240920
  Transmission Date: 20241017
  Serious: Yes (Life-Threatening, Other)
  Sender: MERZ
  Company Number: None

PATIENT
  Age: 77 Year
  Sex: Male
  Weight: 79.4 kg

DRUGS (2)
  1. XEOMIN [Suspect]
     Active Substance: INCOBOTULINUMTOXINA
     Indication: Facial spasm
  2. AMLODIPINE [Concomitant]
     Active Substance: AMLODIPINE BESYLATE

REACTIONS (4)
  - Swollen tongue [Recovered/Resolved]
  - Drooling [Recovered/Resolved]
  - Hypoaesthesia oral [Recovered/Resolved]
  - Dysphagia [Recovered/Resolved]
